FAERS Safety Report 5504675-5 (Version None)
Quarter: 2007Q4

REPORT INFORMATION
  Report Type: 
  Country: None (occurrence: None)
  Receive Date: 20071031
  Receipt Date: 20070125
  Transmission Date: 20080405
  Serious: Yes (Death)
  Sender: FDA-Public Use
  Company Number: IT-GUERBET-20070004

PATIENT
  Age: 47 Year
  Sex: Male

DRUGS (1)
  1. DOTAREM: 06GD044A / MEGLUMINE GADOTERATE [Suspect]
     Indication: NUCLEAR MAGNETIC RESONANCE IMAGING
     Dosage: 20, ML MILLILITRE(S), 1 ,  INTRAVENOUS
     Route: 042
     Dates: start: 20070123, end: 20070123

REACTIONS (11)
  - ANAPHYLACTIC SHOCK [None]
  - AREFLEXIA [None]
  - CARDIAC ARREST [None]
  - CARDIO-RESPIRATORY ARREST [None]
  - CEREBRAL HAEMORRHAGE [None]
  - CYANOSIS [None]
  - DYSGEUSIA [None]
  - GRAND MAL CONVULSION [None]
  - PULSE ABSENT [None]
  - PUPILLARY REFLEX IMPAIRED [None]
  - VOMITING [None]
